FAERS Safety Report 9138126 (Version 1)
Quarter: 2013Q1

REPORT INFORMATION
  Report Type: Report from Study
  Country: FR (occurrence: FR)
  Receive Date: 20130304
  Receipt Date: 20130304
  Transmission Date: 20140127
  Serious: Yes (Hospitalization, Other)
  Sender: FDA-Public Use
  Company Number: FR-BAYER-2013-022963

PATIENT
  Age: 65 Year
  Sex: Female

DRUGS (3)
  1. REGORAFENIB [Suspect]
     Indication: COLORECTAL CANCER METASTATIC
     Dosage: DAILY DOSE 160 MG
     Route: 048
     Dates: start: 20130123, end: 20130204
  2. INEXIUM [Concomitant]
     Dosage: 20 MG, UNK
     Route: 048
  3. FORLAX [Concomitant]
     Dosage: 20 G, UNK
     Route: 048

REACTIONS (4)
  - Rash [None]
  - Palmar-plantar erythrodysaesthesia syndrome [None]
  - Asthenia [None]
  - Pyrexia [None]
